FAERS Safety Report 6864629-3 (Version None)
Quarter: 2010Q3

REPORT INFORMATION
  Report Type: 
  Country: None (occurrence: None)
  Receive Date: 20100721
  Receipt Date: 20080613
  Transmission Date: 20110219
  Serious: No
  Sender: FDA-Public Use
  Company Number: US-PFIZER INC-2008027954

PATIENT
  Sex: Female
  Weight: 88.45 kg

DRUGS (3)
  1. CHANTIX [Suspect]
     Indication: SMOKING CESSATION THERAPY
     Dates: start: 20080228, end: 20080401
  2. ANTIHYPERTENSIVES [Concomitant]
  3. CHOLESTEROL- AND TRIGLYCERIDE REDUCERS [Concomitant]

REACTIONS (4)
  - ABNORMAL DREAMS [None]
  - INSOMNIA [None]
  - MYALGIA [None]
  - PAIN IN EXTREMITY [None]
